FAERS Safety Report 16635773 (Version 1)
Quarter: 2019Q3

REPORT INFORMATION
  Report Type: Report from Study
  Country: US (occurrence: US)
  Receive Date: 20190726
  Receipt Date: 20190726
  Transmission Date: 20191004
  Serious: Yes (Other)
  Sender: FDA-Public Use
  Company Number: US-ROCHE-2362042

PATIENT

DRUGS (5)
  1. OBINUTUZUMAB. [Suspect]
     Active Substance: OBINUTUZUMAB
     Indication: PROPHYLAXIS AGAINST TRANSPLANT REJECTION
     Route: 042
  2. RITUXIMAB. [Suspect]
     Active Substance: RITUXIMAB
     Indication: PROPHYLAXIS AGAINST TRANSPLANT REJECTION
     Route: 065
  3. TOCILIZUMAB. [Suspect]
     Active Substance: TOCILIZUMAB
     Indication: PROPHYLAXIS AGAINST TRANSPLANT REJECTION
     Dosage: MONTHLY
     Route: 042
  4. ECULIZUMAB [Suspect]
     Active Substance: ECULIZUMAB
     Indication: PROPHYLAXIS AGAINST TRANSPLANT REJECTION
     Route: 065
  5. TACROLIMUS. [Suspect]
     Active Substance: TACROLIMUS
     Indication: IMMUNOSUPPRESSANT DRUG THERAPY
     Route: 065

REACTIONS (17)
  - Herpes simplex [Unknown]
  - Gastroenteritis viral [Unknown]
  - BK virus infection [Unknown]
  - Cholangitis [Unknown]
  - Wound infection [Unknown]
  - Bacteraemia [Unknown]
  - Cytomegalovirus infection [Unknown]
  - Histoplasmosis [Unknown]
  - Pneumonia [Unknown]
  - Gastroenteritis bacterial [Unknown]
  - Clostridium difficile colitis [Unknown]
  - Urinary tract infection [Unknown]
  - Abscess [Unknown]
  - Fungal infection [Unknown]
  - Epstein-Barr virus infection [Unknown]
  - Cellulitis [Unknown]
  - Upper respiratory tract infection [Unknown]
